FAERS Safety Report 6580808-7 (Version None)
Quarter: 2010Q1

REPORT INFORMATION
  Report Type: 
  Country: None (occurrence: None)
  Receive Date: 20100215
  Receipt Date: 20100208
  Transmission Date: 20100710
  Serious: Yes (Hospitalization)
  Sender: FDA-Public Use
  Company Number: US-BIOGENIDEC-2009BI033450

PATIENT
  Age: 59 Year
  Sex: Female

DRUGS (1)
  1. TYSABRI [Suspect]
     Indication: MULTIPLE SCLEROSIS
     Route: 042
     Dates: start: 20081230

REACTIONS (6)
  - ABASIA [None]
  - DYSPHONIA [None]
  - DYSSTASIA [None]
  - HYPOGLYCAEMIA [None]
  - MUSCULOSKELETAL DISORDER [None]
  - URINARY TRACT INFECTION [None]
